FAERS Safety Report 14253637 (Version 1)
Quarter: 2017Q4

REPORT INFORMATION
  Report Type: Report from Study
  Country: US (occurrence: US)
  Receive Date: 20171205
  Receipt Date: 20171205
  Transmission Date: 20180321
  Serious: Yes (Other)
  Sender: FDA-Public Use
  Company Number: US-TAKEDA-2017TUS024672

PATIENT
  Sex: Male

DRUGS (1)
  1. VEDOLIZUMAB [Suspect]
     Active Substance: VEDOLIZUMAB
     Indication: CROHN^S DISEASE
     Dosage: UNK
     Route: 042

REACTIONS (6)
  - Joint stiffness [Unknown]
  - Suicidal ideation [Unknown]
  - Abdominal pain lower [Unknown]
  - Depression [Unknown]
  - Crohn^s disease [Unknown]
  - Arthralgia [Unknown]
